FAERS Safety Report 6027439-5 (Version None)
Quarter: 2009Q1

REPORT INFORMATION
  Report Type: 
  Country: None (occurrence: None)
  Receive Date: 20090105
  Receipt Date: 20081222
  Transmission Date: 20090719
  Serious: Yes (Death, Other)
  Sender: FDA-Public Use
  Company Number: TW-MERCK-0812USA04933

PATIENT
  Age: 75 Year
  Sex: Male

DRUGS (8)
  1. PRIMAXIN [Suspect]
     Indication: SEPTIC SHOCK
     Route: 065
  2. PRIMAXIN [Suspect]
     Indication: CATHETER RELATED INFECTION
     Route: 065
  3. SULBACTAM [Concomitant]
     Indication: SEPTIC SHOCK
     Route: 065
  4. SULBACTAM [Concomitant]
     Indication: CATHETER RELATED INFECTION
     Route: 065
  5. COLISTIN [Concomitant]
     Indication: SEPTIC SHOCK
     Route: 065
  6. COLISTIN [Concomitant]
     Indication: CATHETER RELATED INFECTION
     Route: 065
  7. LINEZOLID [Concomitant]
     Indication: SEPTIC SHOCK
     Route: 065
  8. LINEZOLID [Concomitant]
     Indication: CATHETER RELATED INFECTION
     Route: 065

REACTIONS (6)
  - ACUTE RESPIRATORY DISTRESS SYNDROME [None]
  - CARDIOGENIC SHOCK [None]
  - DEATH [None]
  - DRUG INEFFECTIVE [None]
  - PNEUMONIA [None]
  - PULMONARY OEDEMA [None]
